APPROVED DRUG PRODUCT: ALOMIDE
Active Ingredient: LODOXAMIDE TROMETHAMINE
Strength: EQ 0.1% BASE
Dosage Form/Route: SOLUTION/DROPS;OPHTHALMIC
Application: N020191 | Product #001
Applicant: NOVARTIS PHARMACEUTICALS CORP
Approved: Sep 23, 1993 | RLD: Yes | RS: No | Type: DISCN